FAERS Safety Report 7197423-7 (Version None)
Quarter: 2010Q4

REPORT INFORMATION
  Report Type: 
  Country: None (occurrence: None)
  Receive Date: 20101227
  Receipt Date: 20101215
  Transmission Date: 20110411
  Serious: Yes (Hospitalization, Other)
  Sender: FDA-Public Use
  Company Number: US-JNJFOC-20100707308

PATIENT
  Sex: Male

DRUGS (3)
  1. LEVAQUIN [Suspect]
     Indication: URINARY TRACT INFECTION
     Route: 048
  2. LEVAQUIN [Suspect]
     Indication: FLANK PAIN
     Route: 048
  3. METHYLPREDNISOLONE [Suspect]
     Indication: INFLAMMATION
     Route: 065

REACTIONS (2)
  - OSTEOARTHRITIS [None]
  - ROTATOR CUFF SYNDROME [None]
